FAERS Safety Report 5480238-5 (Version None)
Quarter: 2007Q4

REPORT INFORMATION
  Report Type: 
  Country: None (occurrence: None)
  Receive Date: 20071003
  Receipt Date: 20070928
  Transmission Date: 20080405
  Serious: Yes (Hospitalization, Disabling)
  Sender: FDA-Public Use
  Company Number: OSCN-NO-0707S-0301

PATIENT
  Age: 59 Year
  Sex: Female

DRUGS (16)
  1. OMNISCAN [Suspect]
     Indication: BACK PAIN
     Dosage: SINGLE DOSE, I.V.; SINGLE DOSE, I.V.; SINGLE DOSE, I.V.; SINGLE DOSE, I.V.
     Route: 042
     Dates: start: 20030526, end: 20030526
  2. OMNISCAN [Suspect]
     Indication: CEREBROVASCULAR ACCIDENT
     Dosage: SINGLE DOSE, I.V.; SINGLE DOSE, I.V.; SINGLE DOSE, I.V.; SINGLE DOSE, I.V.
     Route: 042
     Dates: start: 20030526, end: 20030526
  3. OMNISCAN [Suspect]
     Indication: BACK PAIN
     Dosage: SINGLE DOSE, I.V.; SINGLE DOSE, I.V.; SINGLE DOSE, I.V.; SINGLE DOSE, I.V.
     Route: 042
     Dates: start: 20041117, end: 20041117
  4. OMNISCAN [Suspect]
     Indication: CEREBROVASCULAR ACCIDENT
     Dosage: SINGLE DOSE, I.V.; SINGLE DOSE, I.V.; SINGLE DOSE, I.V.; SINGLE DOSE, I.V.
     Route: 042
     Dates: start: 20041117, end: 20041117
  5. OMNISCAN [Suspect]
     Indication: BACK PAIN
     Dosage: SINGLE DOSE, I.V.; SINGLE DOSE, I.V.; SINGLE DOSE, I.V.; SINGLE DOSE, I.V.
     Route: 042
     Dates: start: 20060204, end: 20060204
  6. OMNISCAN [Suspect]
     Indication: CEREBROVASCULAR ACCIDENT
     Dosage: SINGLE DOSE, I.V.; SINGLE DOSE, I.V.; SINGLE DOSE, I.V.; SINGLE DOSE, I.V.
     Route: 042
     Dates: start: 20060204, end: 20060204
  7. OMNISCAN [Suspect]
     Indication: BACK PAIN
     Dosage: SINGLE DOSE, I.V.; SINGLE DOSE, I.V.; SINGLE DOSE, I.V.; SINGLE DOSE, I.V.
     Route: 042
     Dates: start: 20060720, end: 20060720
  8. OMNISCAN [Suspect]
     Indication: CEREBROVASCULAR ACCIDENT
     Dosage: SINGLE DOSE, I.V.; SINGLE DOSE, I.V.; SINGLE DOSE, I.V.; SINGLE DOSE, I.V.
     Route: 042
     Dates: start: 20060720, end: 20060720
  9. MEGLUMINE GADOTERATE (DOTAREM) [Concomitant]
  10. GADOPENTETATE DIMEGLUMINE (MAGNEVIST) [Concomitant]
  11. FLUOROURACIL [Concomitant]
  12. PROLEUKIN [Concomitant]
  13. INTRON A [Concomitant]
  14. VINBLASTINE SULFATE (VELBE) [Concomitant]
  15. CELECTOL [Concomitant]
  16. CIPROFIBRATE (LIPANOR) [Concomitant]

REACTIONS (5)
  - AREFLEXIA [None]
  - CEREBROVASCULAR ACCIDENT [None]
  - DRUG INEFFECTIVE [None]
  - METASTASES TO LUNG [None]
  - NEPHROGENIC SYSTEMIC FIBROSIS [None]
